FAERS Safety Report 7979597-0 (Version None)
Quarter: 2011Q4

REPORT INFORMATION
  Report Type: 
  Country: None (occurrence: None)
  Receive Date: 20111213
  Receipt Date: 20111213
  Transmission Date: 20120403
  Serious: Yes (Life-Threatening, Hospitalization)
  Sender: FDA-Public Use
  Company Number: None

PATIENT
  Age: 92 Year
  Sex: Male
  Weight: 68.5 kg

DRUGS (2)
  1. ASPIRIN [Suspect]
     Indication: CORONARY ARTERY DISEASE
     Dosage: 162 MG AM PO
     Route: 048
     Dates: start: 20080215, end: 20111201
  2. ASPIRIN [Suspect]
     Indication: ATRIAL FIBRILLATION
     Dosage: 162 MG AM PO
     Route: 048
     Dates: start: 20080215, end: 20111201

REACTIONS (5)
  - GASTROINTESTINAL HAEMORRHAGE [None]
  - GASTRIC HAEMORRHAGE [None]
  - HAEMATOCRIT DECREASED [None]
  - HYPOTENSION [None]
  - HAEMOGLOBIN DECREASED [None]
